FAERS Safety Report 16539153 (Version 2)
Quarter: 2019Q3

REPORT INFORMATION
  Report Type: Spontaneous
  Country: DE (occurrence: DE)
  Receive Date: 20190708
  Receipt Date: 20190712
  Transmission Date: 20191004
  Serious: Yes (Congenital Anomaly, Other)
  Sender: FDA-Public Use
  Company Number: DE-PFIZER INC-2019289123

PATIENT
  Sex: Male
  Weight: 3 kg

DRUGS (9)
  1. L-THYROXIN [LEVOTHYROXINE SODIUM] [Concomitant]
     Indication: AUTOIMMUNE THYROIDITIS
     Dosage: 75 UG, UNK
     Route: 064
     Dates: start: 20130310, end: 20131113
  2. FOLIC ACID. [Concomitant]
     Active Substance: FOLIC ACID
     Indication: NEURAL TUBE DEFECT
     Dosage: 4296 MG, UNK
     Route: 064
  3. IODINE. [Concomitant]
     Active Substance: IODINE
     Indication: NEURAL TUBE DEFECT
     Dosage: 4 MG, QD
     Route: 064
  4. XELEVIA [Suspect]
     Active Substance: SITAGLIPTIN PHOSPHATE
     Indication: TYPE 2 DIABETES MELLITUS
     Dosage: 100 MG, QD
     Route: 064
     Dates: start: 20130310, end: 20130425
  5. METFORMIN HCL [Suspect]
     Active Substance: METFORMIN HYDROCHLORIDE
     Indication: TYPE 2 DIABETES MELLITUS
     Dosage: 2000 MG, QD
     Route: 064
     Dates: start: 20130310, end: 20130425
  6. INSULIN [Concomitant]
     Active Substance: INSULIN NOS
     Indication: NEURAL TUBE DEFECT
     Dosage: UNK
  7. METOPROLOL. [Concomitant]
     Active Substance: METOPROLOL
     Indication: HYPERTENSION
     Dosage: 95 MG, QD
     Route: 064
     Dates: start: 20130502, end: 20131113
  8. DOPEGYT [Suspect]
     Active Substance: METHYLDOPA
     Indication: HYPERTENSION
     Dosage: 1000 MG, QD STRENGTH: 250MG
     Route: 064
     Dates: start: 20130502, end: 20131113
  9. RAMIPRIL. [Suspect]
     Active Substance: RAMIPRIL
     Indication: HYPERTENSION
     Dosage: 10 MG, QD
     Route: 064
     Dates: start: 20130310, end: 20130425

REACTIONS (5)
  - Diabetic foetopathy [Recovered/Resolved]
  - Large for dates baby [Recovering/Resolving]
  - Maternal exposure during pregnancy [Unknown]
  - Premature baby [Unknown]
  - Atrial septal defect [Unknown]

NARRATIVE: CASE EVENT DATE: 20130502
